FAERS Safety Report 19641136 (Version 1)
Quarter: 2021Q3

REPORT INFORMATION
  Report Type: Spontaneous
  Country: TW (occurrence: US)
  Receive Date: 20210729
  Receipt Date: 20210729
  Transmission Date: 20211014
  Serious: No
  Sender: FDA-Public Use
  Company Number: TW-GLAXOSMITHKLINE-TWCH2021048982

PATIENT
  Sex: Female

DRUGS (2)
  1. PANADOL [Suspect]
     Active Substance: ACETAMINOPHEN
     Indication: PRODUCT USED FOR UNKNOWN INDICATION
     Dosage: UNK
  2. ADVIL [Suspect]
     Active Substance: IBUPROFEN
     Indication: PRODUCT USED FOR UNKNOWN INDICATION
     Dosage: UNK

REACTIONS (5)
  - Rash [Recovered/Resolved]
  - Intercepted medication error [Unknown]
  - Pyrexia [Recovered/Resolved]
  - Pain [Unknown]
  - Hypersensitivity [Recovered/Resolved]
